FAERS Safety Report 4906683-1 (Version None)
Quarter: 2006Q1

REPORT INFORMATION
  Report Type: 
  Country: None (occurrence: None)
  Receive Date: 20060206
  Receipt Date: 20060124
  Transmission Date: 20060701
  Serious: Yes (Other)
  Sender: FDA-Public Use
  Company Number: HQWYE525727JAN06

PATIENT
  Age: 56 Year
  Sex: Male
  Weight: 102.5 kg

DRUGS (14)
  1. PROGRAF [Suspect]
     Indication: PROPHYLAXIS AGAINST TRANSPLANT REJECTION
     Dosage: 6 MG 2X PER 1 DAY, ORAL
     Route: 048
     Dates: start: 20050630
  2. MULTIVITAMINS, PLAIN (MULTIVITAMINS, PLAIN) [Concomitant]
  3. NORVASC [Concomitant]
  4. ACTIGALL [Concomitant]
  5. BACTRIM [Concomitant]
  6. METOPROLOL TARTRATE [Concomitant]
  7. PERIDEX (CHLORHEXIDINE GLUCONATE) [Concomitant]
  8. DILAUDID [Concomitant]
  9. ULTRAM [Concomitant]
  10. FENTANYL [Concomitant]
  11. COLACE (DOCUSATE SODIUM) [Concomitant]
  12. SENNA (SENNA) [Concomitant]
  13. INFLUENZA VIRUS VACCINE (INFLUENZA VIRUS VACCINE POLYVALENT) [Concomitant]
  14. ASPIRIN [Concomitant]

REACTIONS (6)
  - ADENOCARCINOMA PANCREAS [None]
  - HEPATIC NEOPLASM MALIGNANT [None]
  - METASTASES TO LIVER [None]
  - PANCREATIC ATROPHY [None]
  - PANCREATIC DUCT OBSTRUCTION [None]
  - SPLENIC VEIN THROMBOSIS [None]
